FAERS Safety Report 8394956-2 (Version None)
Quarter: 2012Q2

REPORT INFORMATION
  Report Type: 
  Country: None (occurrence: None)
  Receive Date: 20120530
  Receipt Date: 20120105
  Transmission Date: 20120825
  Serious: No
  Sender: FDA-Public Use
  Company Number: US-GLAXOSMITHKLINE-A0960629A

PATIENT
  Age: 46 Year
  Sex: Male

DRUGS (1)
  1. FLOLAN [Suspect]
     Indication: PORTOPULMONARY HYPERTENSION
     Route: 042
     Dates: end: 20111201

REACTIONS (2)
  - HEADACHE [None]
  - RHINALGIA [None]
